FAERS Safety Report 8593567 (Version 2)
Quarter: 2012Q4

REPORT INFORMATION
  Report Type: 
  Country: US (occurrence: US)
  Receive Date: 20120604
  Receipt Date: 20121011
  Transmission Date: 20130627
  Serious: Yes (Hospitalization)
  Sender: FDA-Public Use
  Company Number: US-BAYER-2012-053437

PATIENT
  Age: 42 Year
  Sex: Female
  Weight: 90.7 kg

DRUGS (5)
  1. YAZ [Suspect]
     Dosage: UNK
     Dates: start: 20090701
  2. OCELLA [Suspect]
     Indication: PREMENSTRUAL SYNDROME
     Dosage: UNK
     Dates: start: 200909, end: 201004
  3. OCELLA [Suspect]
     Indication: PREMENSTRUAL SYNDROME
  4. RISPERDAL [Concomitant]
     Indication: BIPOLAR I DISORDER
  5. KLONOPIN [Concomitant]
     Indication: BIPOLAR I DISORDER

REACTIONS (8)
  - Pulmonary embolism [None]
  - Deep vein thrombosis [Recovered/Resolved]
  - Injury [None]
  - General physical health deterioration [None]
  - Pain [None]
  - Pain [None]
  - Emotional distress [None]
  - Anxiety [None]
